FAERS Safety Report 7441443-1 (Version None)
Quarter: 2011Q2

REPORT INFORMATION
  Report Type: 
  Country: None (occurrence: None)
  Receive Date: 20110418
  Receipt Date: 20110405
  Transmission Date: 20111010
  Serious: Yes (Death, Hospitalization, Other)
  Sender: FDA-Public Use
  Company Number: US-2011-10067

PATIENT
  Age: 68 Year
  Sex: Male
  Weight: 80 kg

DRUGS (1)
  1. SAMSCA [Suspect]
     Indication: CARDIOMEGALY
     Dosage: 15 MG MILLIGRAM(S), DAILY DOSE, ORAL
     Route: 048

REACTIONS (6)
  - UNRESPONSIVE TO STIMULI [None]
  - URINE OUTPUT INCREASED [None]
  - RAPID CORRECTION OF HYPONATRAEMIA [None]
  - HYPERNATRAEMIA [None]
  - WEIGHT DECREASED [None]
  - CONVULSION [None]
